FAERS Safety Report 14304679 (Version 1)
Quarter: 2017Q4

REPORT INFORMATION
  Report Type: Spontaneous
  Country: AT (occurrence: AT)
  Receive Date: 20171219
  Receipt Date: 20171219
  Transmission Date: 20180321
  Serious: Yes (Hospitalization)
  Sender: FDA-Public Use
  Company Number: AT-OTSUKA-DJ20105444

PATIENT

DRUGS (1)
  1. OPC-14597 [Suspect]
     Active Substance: CILOSTAZOL
     Indication: PSYCHOTIC DISORDER
     Route: 030

REACTIONS (3)
  - Blood pressure abnormal [Recovered/Resolved]
  - Pulse abnormal [Recovered/Resolved]
  - Vomiting [Recovered/Resolved]

NARRATIVE: CASE EVENT DATE: 20100903
